FAERS Safety Report 4748775-6 (Version None)
Quarter: 2005Q3

REPORT INFORMATION
  Report Type: 
  Country: None (occurrence: None)
  Receive Date: 20050817
  Receipt Date: 20050804
  Transmission Date: 20060218
  Serious: Yes (Hospitalization)
  Sender: FDA-Public Use
  Company Number: 198857

PATIENT
  Age: 49 Year
  Sex: Male
  Weight: 74.8435 kg

DRUGS (6)
  1. AVONEX [Suspect]
     Indication: MULTIPLE SCLEROSIS
     Dosage: SEE IMAGE
     Route: 030
     Dates: start: 20010501, end: 20030101
  2. AVONEX [Suspect]
     Indication: MULTIPLE SCLEROSIS
     Dosage: SEE IMAGE
     Route: 030
     Dates: start: 20030101, end: 20040501
  3. AVONEX [Suspect]
     Indication: MULTIPLE SCLEROSIS
     Dosage: SEE IMAGE
     Route: 030
     Dates: start: 20040526
  4. ZANAFLEX [Concomitant]
  5. PROVIGIL [Concomitant]
  6. DITROPAN XL [Concomitant]

REACTIONS (19)
  - AGNOSIA [None]
  - ASCITES [None]
  - BLOOD URINE PRESENT [None]
  - BRONCHITIS [None]
  - COGNITIVE DISORDER [None]
  - COLONIC POLYP [None]
  - CONDITION AGGRAVATED [None]
  - DYSPHASIA [None]
  - GAIT DISTURBANCE [None]
  - HAEMATOCHEZIA [None]
  - INFLUENZA LIKE ILLNESS [None]
  - INJECTION SITE PAIN [None]
  - INTESTINAL STRANGULATION [None]
  - LUNG INFECTION [None]
  - OPHTHALMOPLEGIA [None]
  - OPTIC NEURITIS [None]
  - POST PROCEDURAL COMPLICATION [None]
  - SCIATICA [None]
  - SMALL INTESTINAL OBSTRUCTION [None]
